FAERS Safety Report 10186103 (Version 1)
Quarter: 2014Q2

REPORT INFORMATION
  Report Type: Spontaneous
  Country: ES (occurrence: ES)
  Receive Date: 20140521
  Receipt Date: 20140521
  Transmission Date: 20141212
  Serious: Yes (Hospitalization, Other)
  Sender: FDA-Public Use
  Company Number: ES-ELI_LILLY_AND_COMPANY-ES201405005104

PATIENT
  Sex: Female

DRUGS (2)
  1. INSULIN LISPRO [Suspect]
     Indication: PRODUCT USED FOR UNKNOWN INDICATION
     Dosage: 20 DF, QD
     Route: 065
  2. INSULIN LISPRO [Suspect]
     Dosage: 24 DF, QD
     Route: 065

REACTIONS (3)
  - Hypoglycaemia [Unknown]
  - Neuroglycopenia [Unknown]
  - Inappropriate schedule of drug administration [Unknown]
